FAERS Safety Report 9324533 (Version 3)
Quarter: 2014Q1

REPORT INFORMATION
  Report Type: Spontaneous
  Country: CN (occurrence: CN)
  Receive Date: 20130603
  Receipt Date: 20140217
  Transmission Date: 20141002
  Serious: No
  Sender: FDA-Public Use
  Company Number: CN-JNJFOC-20130519051

PATIENT
  Age: 2 Year
  Sex: Female
  Weight: 10.5 kg

DRUGS (2)
  1. TOPAMAX [Suspect]
     Indication: EPILEPSY
     Dosage: 25MG*60 12.5MG IN THE MORNING AND 25MG IN EVENING
     Route: 048
     Dates: start: 201202
  2. TOPAMAX [Suspect]
     Indication: EPILEPSY
     Dosage: 6.25MG IN MORNING AND 12.5MG IN EVENING
     Route: 048
     Dates: end: 201401

REACTIONS (2)
  - Body temperature increased [Recovered/Resolved]
  - Incorrect dosage administered [Unknown]
